FAERS Safety Report 19487517 (Version 2)
Quarter: 2022Q1

REPORT INFORMATION
  Report Type: Spontaneous
  Country: US (occurrence: US)
  Receive Date: 20210702
  Receipt Date: 20220309
  Transmission Date: 20220423
  Serious: No
  Sender: FDA-Public Use
  Company Number: US-PFIZER INC-2021645329

PATIENT
  Age: 14 Year
  Sex: Male

DRUGS (2)
  1. GENOTROPIN [Suspect]
     Active Substance: SOMATROPIN
     Indication: Blood growth hormone
     Dosage: AT 2 MG, ONCE DAILY (EVERY NIGHT)
     Dates: start: 201812
  2. DYANAVEL XR [Concomitant]
     Active Substance: AMPHETAMINE
     Indication: Attention deficit hyperactivity disorder
     Dosage: 6 ML, ONCE DAILY (EVERY MORNING)

REACTIONS (4)
  - Expired device used [Unknown]
  - Device use issue [Unknown]
  - Device information output issue [Unknown]
  - Headache [Unknown]

NARRATIVE: CASE EVENT DATE: 20210601
